FAERS Safety Report 6889867-5 (Version None)
Quarter: 2010Q3

REPORT INFORMATION
  Report Type: 
  Country: None (occurrence: None)
  Receive Date: 20100730
  Receipt Date: 20080528
  Transmission Date: 20110219
  Serious: No
  Sender: FDA-Public Use
  Company Number: US-PFIZER INC-2008045996

PATIENT
  Sex: Female
  Weight: 75.75 kg

DRUGS (20)
  1. LIPITOR [Suspect]
     Dates: start: 20060920, end: 20070101
  2. REBIF [Suspect]
     Indication: MULTIPLE SCLEROSIS
     Dosage: 3 EVERY 1 WEEKS
     Route: 058
     Dates: start: 20061101
  3. ZETIA [Suspect]
     Dates: start: 20060920
  4. ACETYLSALICYLIC ACID SRT [Concomitant]
     Dates: start: 20060918
  5. ATACAND HCT [Concomitant]
     Dates: start: 20071114
  6. VITAMIN B COMPLEX CAP [Concomitant]
     Dosage: 1 DOSEAGE FORMS
     Dates: start: 20060918
  7. CALCIUM [Concomitant]
     Dates: start: 20060918
  8. FISH OIL [Concomitant]
     Dates: start: 20060918
  9. FOSAMAX [Concomitant]
     Dates: start: 20061005
  10. GLUCOSAMINE [Concomitant]
     Dates: start: 20060918
  11. IBUPROFEN TABLETS [Concomitant]
     Dates: start: 20070409
  12. MILK THISTLE [Concomitant]
     Dates: start: 20070409
  13. OMEPRAZOLE [Concomitant]
     Dates: start: 20060918
  14. ALL OTHER THERAPEUTIC PRODUCTS [Concomitant]
     Dates: start: 20071114
  15. VITAMIN D [Concomitant]
     Dates: start: 20060918
  16. MULTI-VITAMINS [Concomitant]
     Dates: start: 20070409
  17. MITOXANTRONE [Concomitant]
  18. HEPATITIS A VACCINE [Concomitant]
  19. ZOCOR [Concomitant]
  20. VYTORIN [Concomitant]

REACTIONS (4)
  - BLOOD IRON INCREASED [None]
  - GASTROINTESTINAL DISORDER [None]
  - HEPATIC ENZYME INCREASED [None]
  - HEPATIC STEATOSIS [None]
